FAERS Safety Report 16351588 (Version 1)
Quarter: 2019Q2

REPORT INFORMATION
  Report Type: Report from Study
  Country: CA (occurrence: CA)
  Receive Date: 20190524
  Receipt Date: 20190524
  Transmission Date: 20190711
  Serious: Yes (Other)
  Sender: FDA-Public Use
  Company Number: CA-ROCHE-1575363

PATIENT
  Age: 68 Year
  Sex: Male
  Weight: 84 kg

DRUGS (24)
  1. ACTEMRA [Suspect]
     Active Substance: TOCILIZUMAB
     Dosage: ON HOLD
     Route: 042
     Dates: start: 20160607
  2. ACTEMRA [Suspect]
     Active Substance: TOCILIZUMAB
     Route: 042
     Dates: start: 20170117
  3. SALBUTAMOL [Concomitant]
     Active Substance: ALBUTEROL
  4. CLOPIDOGREL [Concomitant]
     Active Substance: CLOPIDOGREL BISULFATE
  5. TYLENOL WITH CODEINE [Concomitant]
     Active Substance: ACETAMINOPHEN\CODEINE PHOSPHATE
     Route: 065
  6. CANDESARTAN. [Concomitant]
     Active Substance: CANDESARTAN
  7. CALCIUM CARBONATE. [Concomitant]
     Active Substance: CALCIUM CARBONATE
  8. SIMVASTATIN. [Concomitant]
     Active Substance: SIMVASTATIN
  9. ACTEMRA [Suspect]
     Active Substance: TOCILIZUMAB
     Route: 042
     Dates: start: 20150514
  10. TOPICORTE [Concomitant]
     Active Substance: DESOXIMETASONE
     Dosage: TOPICAL FOOT CREAM
     Route: 065
  11. MORPHINE [Concomitant]
     Active Substance: MORPHINE
  12. PLAQUENIL [Concomitant]
     Active Substance: HYDROXYCHLOROQUINE SULFATE
     Route: 048
  13. CITALOPRAM [Concomitant]
     Active Substance: CITALOPRAM HYDROBROMIDE
  14. NAPROXEN. [Concomitant]
     Active Substance: NAPROXEN
  15. ACTEMRA [Suspect]
     Active Substance: TOCILIZUMAB
     Indication: RHEUMATOID ARTHRITIS
     Route: 042
     Dates: start: 20150409
  16. NITROGLYCERIN. [Concomitant]
     Active Substance: NITROGLYCERIN
     Dosage: NOT USED LATELT
     Route: 065
  17. IMURAN [Concomitant]
     Active Substance: AZATHIOPRINE
     Route: 048
  18. ACTEMRA [Suspect]
     Active Substance: TOCILIZUMAB
     Route: 042
     Dates: start: 20170509
  19. RAMIPRIL. [Concomitant]
     Active Substance: RAMIPRIL
  20. ACETYLSALICYLIC ACID [Concomitant]
     Active Substance: ASPIRIN
     Route: 065
  21. SPIRIVA [Concomitant]
     Active Substance: TIOTROPIUM BROMIDE MONOHYDRATE
  22. DOCUSATE SODIUM. [Concomitant]
     Active Substance: DOCUSATE SODIUM
  23. BETADINE [Concomitant]
     Active Substance: POVIDONE-IODINE
  24. METOPROLOL. [Concomitant]
     Active Substance: METOPROLOL
     Route: 065

REACTIONS (24)
  - Mouth injury [Recovering/Resolving]
  - Oxygen saturation decreased [Unknown]
  - Investigation abnormal [Recovering/Resolving]
  - Peripheral swelling [Not Recovered/Not Resolved]
  - Rash [Recovering/Resolving]
  - Alopecia [Unknown]
  - Rash pruritic [Unknown]
  - Infusion related reaction [Unknown]
  - Hypertension [Unknown]
  - Weight decreased [Unknown]
  - Rash [Not Recovered/Not Resolved]
  - Blood pressure systolic increased [Unknown]
  - Hypotension [Unknown]
  - Musculoskeletal stiffness [Recovering/Resolving]
  - Pain [Recovering/Resolving]
  - Abdominal pain [Recovering/Resolving]
  - Rhinorrhoea [Recovered/Resolved]
  - Weight increased [Recovering/Resolving]
  - Dizziness [Unknown]
  - Acne [Not Recovered/Not Resolved]
  - Blood pressure diastolic decreased [Unknown]
  - Skin ulcer [Recovered/Resolved]
  - Limb injury [Recovered/Resolved]
  - Dyspnoea [Unknown]

NARRATIVE: CASE EVENT DATE: 201505
